FAERS Safety Report 6998613-6 (Version None)
Quarter: 2010Q3

REPORT INFORMATION
  Report Type: 
  Country: None (occurrence: None)
  Receive Date: 20100920
  Receipt Date: 20070517
  Transmission Date: 20110219
  Serious: Yes (Other)
  Sender: FDA-Public Use
  Company Number: US-ASTRAZENECA-2006UW24101

PATIENT
  Age: 51 Year
  Sex: Female
  Weight: 92.1 kg

DRUGS (13)
  1. SEROQUEL [Suspect]
     Indication: BIPOLAR DISORDER
     Dosage: 25 MG - 200 MG
     Route: 048
     Dates: start: 20011129
  2. SEROQUEL [Suspect]
     Route: 048
     Dates: start: 20040121
  3. ZYPREXA [Suspect]
  4. ABILIFY [Concomitant]
  5. GEODON [Concomitant]
  6. TRAZODONE HCL [Concomitant]
  7. CLONAZEPAM [Concomitant]
     Dates: start: 20011129
  8. PROPRANOLOL [Concomitant]
     Dates: start: 20011129
  9. CARISOPRODOL [Concomitant]
     Dates: start: 20011129
  10. PAXIL [Concomitant]
     Dosage: 12.5 - 80 MG
     Dates: start: 20031231
  11. METHOCARBAMOL [Concomitant]
     Dosage: 500 - 750 MG
     Dates: start: 20011129
  12. ALBUTEROL [Concomitant]
     Dosage: TWO PUFFS B.I.D
     Dates: start: 19990618
  13. DEPAKOTE [Concomitant]
     Dates: start: 20010904

REACTIONS (2)
  - DIABETES MELLITUS [None]
  - PANCREATITIS [None]
